FAERS Safety Report 7158949-5 (Version None)
Quarter: 2010Q4

REPORT INFORMATION
  Report Type: 
  Country: None (occurrence: None)
  Receive Date: 20101214
  Receipt Date: 20101208
  Transmission Date: 20110411
  Serious: Yes (Disabling, Other)
  Sender: FDA-Public Use
  Company Number: US-SANOFI-AVENTIS-2010SA070404

PATIENT
  Sex: Female
  Weight: 95 kg

DRUGS (6)
  1. LANTUS [Suspect]
     Indication: TYPE 2 DIABETES MELLITUS
     Dosage: DOSE:24 UNIT(S)
     Route: 058
     Dates: start: 20000101
  2. LANTUS [Suspect]
     Dosage: DOSE:24 UNIT(S)
     Route: 058
     Dates: start: 20000101
  3. LANTUS [Suspect]
     Dosage: DOSE:24 UNIT(S)
     Route: 058
     Dates: start: 20000101
  4. LANTUS [Suspect]
     Indication: TYPE 2 DIABETES MELLITUS
  5. LANTUS [Suspect]
  6. LANTUS [Suspect]

REACTIONS (4)
  - ABASIA [None]
  - ARTHROPATHY [None]
  - FALL [None]
  - RENAL FAILURE [None]
